FAERS Safety Report 11287900 (Version 2)
Quarter: 2015Q3

REPORT INFORMATION
  Report Type: Spontaneous
  Country: GB (occurrence: GB)
  Receive Date: 20150721
  Receipt Date: 20150722
  Transmission Date: 20151125
  Serious: Yes (Life-Threatening)
  Sender: FDA-Public Use
  Company Number: GB-ELI_LILLY_AND_COMPANY-GB201507005158

PATIENT
  Age: 46 Year
  Sex: Female
  Weight: 108 kg

DRUGS (5)
  1. BACLOFEN. [Concomitant]
     Active Substance: BACLOFEN
     Indication: MULTIPLE SCLEROSIS
     Dosage: 60 MG, UNKNOWN
     Route: 048
     Dates: start: 2011
  2. IBUPROFEN. [Concomitant]
     Active Substance: IBUPROFEN
     Dosage: 40 MG, UNKNOWN
     Route: 048
     Dates: start: 2015
  3. DULOXETINE HYDROCHLORIDE. [Suspect]
     Active Substance: DULOXETINE HYDROCHLORIDE
     Indication: PAIN
     Dosage: 60 MG, UNKNOWN
     Route: 048
     Dates: start: 20150123, end: 20150508
  4. CERELLE [Concomitant]
     Indication: POLYCYSTIC OVARIES
     Dosage: 75 MG, UNKNOWN
     Route: 048
     Dates: start: 2013
  5. DIAZEPAM. [Concomitant]
     Active Substance: DIAZEPAM
     Indication: MULTIPLE SCLEROSIS
     Dosage: 8 MG, UNKNOWN
     Route: 048
     Dates: start: 2011

REACTIONS (1)
  - Drug-induced liver injury [Recovering/Resolving]
